FAERS Safety Report 16324398 (Version 1)
Quarter: 2019Q2

REPORT INFORMATION
  Report Type: Spontaneous
  Country: SE (occurrence: SE)
  Receive Date: 20190517
  Receipt Date: 20190517
  Transmission Date: 20190711
  Serious: Yes (Other)
  Sender: FDA-Public Use
  Company Number: SE-ACCORD-127933

PATIENT
  Sex: Male

DRUGS (1)
  1. DOCETAXEL. [Suspect]
     Active Substance: DOCETAXEL
     Indication: PRODUCT USED FOR UNKNOWN INDICATION
     Dates: start: 201812

REACTIONS (5)
  - Iritis [Unknown]
  - Polyneuropathy [Unknown]
  - Pain in extremity [Unknown]
  - Feeling abnormal [Unknown]
  - Nerve injury [Unknown]
